FAERS Safety Report 5385588-9 (Version None)
Quarter: 2007Q3

REPORT INFORMATION
  Report Type: 
  Country: None (occurrence: None)
  Receive Date: 20070710
  Receipt Date: 20070703
  Transmission Date: 20080115
  Serious: Yes (Other)
  Sender: FDA-Public Use
  Company Number: FEI2007-1145

PATIENT
  Age: 39 Year
  Sex: Female

DRUGS (1)
  1. GYNE-T 380 (INTRAUTERINE CONTRACEPTIVE DEVICE) (UTERINE) [Suspect]
     Dosage: INTRA-UTERINE
     Route: 015
     Dates: start: 19980101, end: 20060301

REACTIONS (5)
  - DRUG EXPOSURE DURING PREGNANCY [None]
  - IUD MIGRATION [None]
  - PREGNANCY WITH CONTRACEPTIVE DEVICE [None]
  - UNINTENDED PREGNANCY [None]
  - UTERINE PERFORATION [None]
